FAERS Safety Report 7898020-8 (Version None)
Quarter: 2011Q4

REPORT INFORMATION
  Report Type: 
  Country: None (occurrence: None)
  Receive Date: 20111107
  Receipt Date: 20111107
  Transmission Date: 20120403
  Serious: Yes (Other)
  Sender: FDA-Public Use
  Company Number: None

PATIENT
  Age: 53 Year
  Sex: Female
  Weight: 71.214 kg

DRUGS (1)
  1. MELOXICAM [Suspect]
     Indication: EPICONDYLITIS
     Dosage: 1 TABLET
     Route: 048
     Dates: start: 20110924, end: 20111104

REACTIONS (6)
  - BURNING SENSATION [None]
  - ORAL DISCOMFORT [None]
  - SKIN EXFOLIATION [None]
  - SWELLING FACE [None]
  - MUSCLE TIGHTNESS [None]
  - RASH PRURITIC [None]
